FAERS Safety Report 16567265 (Version 1)
Quarter: 2019Q3

REPORT INFORMATION
  Report Type: Spontaneous
  Country: US (occurrence: US)
  Receive Date: 20190712
  Receipt Date: 20190712
  Transmission Date: 20191004
  Serious: Yes (Other)
  Sender: FDA-Public Use
  Company Number: US-IPSEN BIOPHARMACEUTICALS, INC.-2019-12109

PATIENT
  Sex: Female

DRUGS (1)
  1. SOMATULINE [Suspect]
     Active Substance: LANREOTIDE ACETATE
     Indication: PRODUCT USED FOR UNKNOWN INDICATION
     Dosage: NOT REPORTED
     Route: 065

REACTIONS (9)
  - Dysphagia [Unknown]
  - Oropharyngeal pain [Unknown]
  - Swollen tongue [Unknown]
  - Dizziness [Unknown]
  - Asthenia [Unknown]
  - Pain in extremity [Unknown]
  - Haemorrhage [Unknown]
  - Arthralgia [Unknown]
  - Glossodynia [Unknown]

NARRATIVE: CASE EVENT DATE: 2019
